FAERS Safety Report 9772160 (Version 1)
Quarter: 2013Q4

REPORT INFORMATION
  Report Type: Spontaneous
  Country: US (occurrence: None)
  Receive Date: 20131218
  Receipt Date: 20131218
  Transmission Date: 20140711
  Serious: Yes (Life-Threatening, Disabling)
  Sender: FDA-Public Use
  Company Number: None

PATIENT
  Age: 18 Year
  Sex: Female
  Weight: 94.35 kg

DRUGS (2)
  1. OGESTREL [Suspect]
     Indication: ABDOMINAL PAIN
     Dosage: 1 PILL, ONCE DAILY, ORALLY
     Route: 048
  2. OGESTREL [Suspect]
     Indication: NAUSEA
     Dosage: 1 PILL, ONCE DAILY, ORALLY
     Route: 048

REACTIONS (4)
  - Food allergy [None]
  - Anaphylactic shock [None]
  - Fatigue [None]
  - Hepatitis [None]
